FAERS Safety Report 23248344 (Version 1)
Quarter: 2023Q4

REPORT INFORMATION
  Report Type: Spontaneous
  Country: US (occurrence: US)
  Receive Date: 20231201
  Receipt Date: 20231201
  Transmission Date: 20240110
  Serious: No
  Sender: FDA-Public Use
  Company Number: US-BRISTOL-MYERS SQUIBB COMPANY-2023-173364

PATIENT
  Age: 35 Year
  Sex: Female

DRUGS (2)
  1. NIVOLUMAB [Suspect]
     Active Substance: NIVOLUMAB
     Indication: Metastatic malignant melanoma
     Dosage: 1 MON, 2 CYCLES
  2. PEMBROLIZUMAB [Concomitant]
     Active Substance: PEMBROLIZUMAB
     Indication: Metastatic malignant melanoma
     Dosage: 1.5 MO, 2 CYCLES
     Dates: start: 2020

REACTIONS (8)
  - Hepatic enzyme increased [Unknown]
  - Immune-mediated dermatitis [Unknown]
  - Myalgia [Unknown]
  - Hot flush [Unknown]
  - Generalised oedema [Unknown]
  - Abdominal pain [Unknown]
  - Constipation [Unknown]
  - Cough [Unknown]
